FAERS Safety Report 5083070-X (Version None)
Quarter: 2006Q3

REPORT INFORMATION
  Report Type: 
  Country: None (occurrence: None)
  Receive Date: 20060814
  Receipt Date: 20060804
  Transmission Date: 20061208
  Serious: Yes (Other)
  Sender: FDA-Public Use
  Company Number: 2006096609

PATIENT
  Age: 74 Year
  Sex: Female

DRUGS (5)
  1. TAHOR (ATORVASTATIN) [Suspect]
     Indication: LOW DENSITY LIPOPROTEIN INCREASED
     Dosage: 10 MG
     Dates: start: 20050501, end: 20050101
  2. VERAPAMIL [Suspect]
     Indication: HYPERTENSION
     Dosage: 240 MG
  3. HYPERIUM (RILMENIDINE) [Concomitant]
  4. COAPROVEL (HYDROCHLOROTHIAZIDE, IRBESARTAN) [Concomitant]
  5. ASPIRIN [Concomitant]

REACTIONS (11)
  - ANGIOPLASTY [None]
  - ATRIOVENTRICULAR BLOCK FIRST DEGREE [None]
  - DIZZINESS [None]
  - DRUG INTERACTION [None]
  - ELECTROCARDIOGRAM ABNORMAL [None]
  - ELECTROCARDIOGRAM PR PROLONGATION [None]
  - FATIGUE [None]
  - HEART RATE DECREASED [None]
  - LOW DENSITY LIPOPROTEIN ABNORMAL [None]
  - LOW DENSITY LIPOPROTEIN INCREASED [None]
  - SELF-MEDICATION [None]
